FAERS Safety Report 18494527 (Version 2)
Quarter: 2024Q3

REPORT INFORMATION
  Report Type: Spontaneous
  Country: BE (occurrence: BE)
  Receive Date: 20201112
  Receipt Date: 20240704
  Transmission Date: 20241017
  Serious: Yes (Hospitalization, Other)
  Sender: ACCORD
  Company Number: None

PATIENT
  Age: 52 Year
  Sex: Male

DRUGS (5)
  1. FUROSEMIDE [Suspect]
     Active Substance: FUROSEMIDE
     Indication: Chronic obstructive pulmonary disease
     Dosage: 40 MG, QD
  2. SPIRONOLACTONE [Suspect]
     Active Substance: SPIRONOLACTONE
     Indication: Chronic obstructive pulmonary disease
     Dosage: 100 MG, QD
  3. METHYLPREDNISOLONE [Suspect]
     Active Substance: METHYLPREDNISOLONE
     Indication: Product used for unknown indication
     Dosage: 64 MG, UNK
  4. OXYGEN [Concomitant]
     Active Substance: OXYGEN
     Indication: Chronic obstructive pulmonary disease
  5. METHYLPREDNISOLONE [Suspect]
     Active Substance: METHYLPREDNISOLONE
     Indication: Chronic obstructive pulmonary disease
     Dosage: 4 MG, QD

REACTIONS (7)
  - Skin mass [Recovered/Resolved]
  - Chronic obstructive pulmonary disease [Unknown]
  - Skin ulcer [Recovered/Resolved]
  - Mycobacterium marinum infection [Recovered/Resolved]
  - Skin lesion [Recovered/Resolved]
  - Lymphangitis [Recovered/Resolved]
  - Off label use [Unknown]
